FAERS Safety Report 17777270 (Version 1)
Quarter: 2020Q2

REPORT INFORMATION
  Report Type: Spontaneous
  Country: US (occurrence: US)
  Receive Date: 20200513
  Receipt Date: 20200513
  Transmission Date: 20200714
  Serious: No
  Sender: FDA-Public Use
  Company Number: US-TORRENT-00008493

PATIENT
  Sex: Female

DRUGS (1)
  1. LOSARTAN POTASSIUM HYDROCHLOROTHIAZIDE TABLETS [Suspect]
     Active Substance: HYDROCHLOROTHIAZIDE\LOSARTAN POTASSIUM
     Indication: PRODUCT USED FOR UNKNOWN INDICATION
     Dosage: 2 LOSARTAN HCTZ 50/12.5 MG FOR OVER A MONTH.

REACTIONS (3)
  - Adverse event [Unknown]
  - Ear congestion [Unknown]
  - Deafness [Unknown]
